FAERS Safety Report 11564281 (Version 1)
Quarter: 2015Q3

REPORT INFORMATION
  Report Type: Report from Study
  Country: CN (occurrence: CN)
  Receive Date: 20150928
  Receipt Date: 20150928
  Transmission Date: 20151125
  Serious: Yes (Death)
  Sender: FDA-Public Use
  Company Number: CN-SA-2015SA146435

PATIENT

DRUGS (4)
  1. FLUOROURACIL. [Suspect]
     Active Substance: FLUOROURACIL
     Indication: COLORECTAL ADENOCARCINOMA
     Dosage: DAY 1
     Route: 065
  2. OXALIPLATIN. [Suspect]
     Active Substance: OXALIPLATIN
     Indication: COLORECTAL ADENOCARCINOMA
     Dosage: DAY 1
     Route: 065
  3. FLUOROURACIL. [Suspect]
     Active Substance: FLUOROURACIL
     Indication: COLORECTAL ADENOCARCINOMA
     Dosage: FOR 46HRS
     Route: 042
  4. LEUCOVORIN. [Suspect]
     Active Substance: LEUCOVORIN
     Indication: COLORECTAL ADENOCARCINOMA
     Dosage: FOR 2HRS ON DAY 1
     Route: 065

REACTIONS (8)
  - Shock [Fatal]
  - Abdominal pain upper [Fatal]
  - Vomiting [Fatal]
  - Haemorrhagic necrotic pancreatitis [Fatal]
  - Nausea [Fatal]
  - Bone marrow failure [Fatal]
  - Skin infection [Unknown]
  - White blood cell count decreased [Fatal]
